FAERS Safety Report 17000644 (Version 1)
Quarter: 2019Q4

REPORT INFORMATION
  Report Type: Spontaneous
  Country: US (occurrence: US)
  Receive Date: 20191106
  Receipt Date: 20191106
  Transmission Date: 20200122
  Serious: No
  Sender: FDA-Public Use
  Company Number: US-AMNEAL PHARMACEUTICALS-2019AGH00065

PATIENT
  Sex: Male

DRUGS (3)
  1. CLOBAZAM. [Suspect]
     Active Substance: CLOBAZAM
     Indication: GENERALISED NON-CONVULSIVE EPILEPSY
     Dosage: UNK
     Route: 065
  2. TOPAMAX [Concomitant]
     Active Substance: TOPIRAMATE
     Indication: PRODUCT USED FOR UNKNOWN INDICATION
     Dosage: UNK
  3. FENFLURAMINE [Concomitant]
     Active Substance: FENFLURAMINE
     Indication: PRODUCT USED FOR UNKNOWN INDICATION
     Dosage: UNK

REACTIONS (2)
  - Fall [Unknown]
  - Injury [Unknown]
